FAERS Safety Report 26039819 (Version 1)
Quarter: 2025Q4

REPORT INFORMATION
  Report Type: Spontaneous
  Country: US (occurrence: US)
  Receive Date: 20251113
  Receipt Date: 20251113
  Transmission Date: 20260118
  Serious: Yes (Hospitalization, Other)
  Sender: i3 Pharmaceuticals
  Company Number: US-I3PPRD-I3P202510-000065

PATIENT
  Age: 11 Year
  Sex: Male

DRUGS (5)
  1. GUANFACINE [Suspect]
     Active Substance: GUANFACINE
     Indication: Attention deficit hyperactivity disorder
     Dosage: 3 MG
     Route: 065
  2. GUANFACINE [Suspect]
     Active Substance: GUANFACINE
     Dosage: UNKNOWN (BASELINE DOSING-RESTART)
     Route: 065
  3. CLONIDINE [Suspect]
     Active Substance: CLONIDINE
     Indication: Attention deficit hyperactivity disorder
     Dosage: 0.1 MG
     Route: 065
  4. CLONIDINE [Suspect]
     Active Substance: CLONIDINE
     Dosage: UNKNOWN (BASELINE DOSING-RESTART)
     Route: 065
  5. LISDEXAMFETAMINE [Concomitant]
     Active Substance: LISDEXAMFETAMINE
     Indication: Attention deficit hyperactivity disorder
     Dosage: 30 MG
     Route: 065

REACTIONS (6)
  - Drug withdrawal syndrome [Recovering/Resolving]
  - Left ventricular hypertrophy [Recovering/Resolving]
  - Hypertensive urgency [Recovering/Resolving]
  - Proteinuria [Recovering/Resolving]
  - Sinus tachycardia [Recovering/Resolving]
  - Product use in unapproved indication [Unknown]
